FAERS Safety Report 7030587-4 (Version None)
Quarter: 2010Q4

REPORT INFORMATION
  Report Type: 
  Country: None (occurrence: None)
  Receive Date: 20101006
  Receipt Date: 20100929
  Transmission Date: 20110411
  Serious: Yes (Death, Other)
  Sender: FDA-Public Use
  Company Number: JP-GENZYME-CLOF-1000959

PATIENT
  Sex: Female

DRUGS (6)
  1. CLOFARABINE [Suspect]
     Indication: ACUTE LYMPHOCYTIC LEUKAEMIA
     Dosage: 25 MG, QD
     Route: 042
     Dates: start: 20100407, end: 20100407
  2. CLOFARABINE [Suspect]
     Dosage: 25 MG, QD
     Route: 042
     Dates: start: 20100413, end: 20100413
  3. CLOFARABINE [Suspect]
     Dosage: 25 MG, QD
     Route: 042
     Dates: start: 20100419, end: 20100421
  4. CYCLOPHOSPHAMIDE [Suspect]
     Indication: ACUTE LYMPHOCYTIC LEUKAEMIA
     Dosage: 400 MG/M2, QDX5
     Route: 042
     Dates: start: 20100407, end: 20100421
  5. ETOPOSIDE [Suspect]
     Indication: ACUTE LYMPHOCYTIC LEUKAEMIA
     Dosage: 150 MG/M2, QD
     Route: 042
     Dates: start: 20100407, end: 20100421
  6. NEUPOGEN [Concomitant]
     Indication: NEUTROPENIA
     Dosage: 112.5 OTHER, QD
     Dates: start: 20100503, end: 20100507

REACTIONS (2)
  - BONE MARROW FAILURE [None]
  - PSEUDOMONAL SEPSIS [None]
